FAERS Safety Report 9617333 (Version 1)
Quarter: 2013Q4

REPORT INFORMATION
  Report Type: Spontaneous
  Country: FR (occurrence: FR)
  Receive Date: 20131011
  Receipt Date: 20131011
  Transmission Date: 20140711
  Serious: Yes (Hospitalization)
  Sender: FDA-Public Use
  Company Number: FR-BRISTOL-MYERS SQUIBB COMPANY-19484187

PATIENT
  Age: 31 Year
  Sex: Female

DRUGS (7)
  1. ABILIFY TABS 15 MG [Suspect]
     Route: 048
     Dates: start: 2007, end: 20120727
  2. PRAVASTATIN SODIUM [Concomitant]
     Route: 048
  3. SERESTA [Concomitant]
     Route: 048
  4. IMPLANON [Concomitant]
     Route: 058
     Dates: end: 201102
  5. INEXIUM [Concomitant]
     Route: 048
  6. VITAMIN B1 + B6 [Concomitant]
     Route: 048
  7. TOPALGIC LP [Concomitant]
     Route: 048

REACTIONS (2)
  - Pulmonary embolism [Recovered/Resolved]
  - Arterial thrombosis [Recovered/Resolved]
